FAERS Safety Report 8371466-X (Version None)
Quarter: 2012Q2

REPORT INFORMATION
  Report Type: 
  Country: None (occurrence: None)
  Receive Date: 20120518
  Receipt Date: 20120514
  Transmission Date: 20120825
  Serious: Yes (Life-Threatening)
  Sender: FDA-Public Use
  Company Number: AT-ASTRAZENECA-2012SE30882

PATIENT
  Age: 42 Year
  Sex: Female

DRUGS (5)
  1. LORAZEPAM [Concomitant]
     Dates: start: 20120426
  2. MIRTAZAPINE [Concomitant]
     Dates: start: 20120426
  3. VENLAFAXINE HCL [Concomitant]
     Dates: start: 20120430
  4. SEROQUEL XR [Suspect]
     Indication: DEPRESSION
     Route: 048
     Dates: start: 20120426, end: 20120503
  5. VENLAFAXINE HCL [Concomitant]
     Dates: start: 20120426, end: 20120429

REACTIONS (1)
  - PULMONARY EMBOLISM [None]
